FAERS Safety Report 24056519 (Version 3)
Quarter: 2024Q3

REPORT INFORMATION
  Report Type: Spontaneous
  Country: US (occurrence: US)
  Receive Date: 20240705
  Receipt Date: 20240809
  Transmission Date: 20241016
  Serious: Yes (Death, Other)
  Sender: PFIZER
  Company Number: US-PFIZER INC-202400205235

PATIENT
  Age: 64 Year
  Sex: Female
  Weight: 78.5 kg

DRUGS (4)
  1. BUPIVACAINE HYDROCHLORIDE [Suspect]
     Active Substance: BUPIVACAINE HYDROCHLORIDE
     Indication: Local anaesthesia
     Dosage: SPINAL BLOCK WITH 1.2ML, WAS ALSO GIVEN AN EPIDURAL WITH ANOTHER 2ML
     Route: 008
     Dates: start: 20240627
  2. BUPIVACAINE HYDROCHLORIDE [Suspect]
     Active Substance: BUPIVACAINE HYDROCHLORIDE
     Indication: Spinal anaesthesia
  3. EXPAREL [Suspect]
     Active Substance: BUPIVACAINE
     Dosage: UNK
  4. EXPAREL [Suspect]
     Active Substance: BUPIVACAINE
     Dosage: UNK

REACTIONS (6)
  - Local anaesthetic systemic toxicity [Fatal]
  - Cardiac arrest [Unknown]
  - Cardiac disorder [Unknown]
  - Myoclonus [Unknown]
  - Hypertonia [Unknown]
  - Dyskinesia [Unknown]

NARRATIVE: CASE EVENT DATE: 20240627
